FAERS Safety Report 6916665-6 (Version None)
Quarter: 2010Q3

REPORT INFORMATION
  Report Type: 
  Country: None (occurrence: None)
  Receive Date: 20100810
  Receipt Date: 20100805
  Transmission Date: 20110219
  Serious: Yes (Death)
  Sender: FDA-Public Use
  Company Number: PT-ROCHE-717003

PATIENT
  Sex: Male
  Weight: 63 kg

DRUGS (3)
  1. AVASTIN [Suspect]
     Dosage: ROUTE REPORTED AS:EV
     Route: 065
     Dates: start: 20091130, end: 20100329
  2. GEMCITABINE [Concomitant]
     Dosage: ROUTE REPORTED AS:EV
     Dates: start: 20091130, end: 20100329
  3. CISPLATIN [Concomitant]
     Dosage: ROUTE REPORTED AS:EV
     Dates: start: 20091120, end: 20100329

REACTIONS (2)
  - DISEASE PROGRESSION [None]
  - NON-SMALL CELL LUNG CANCER STAGE IV [None]
